FAERS Safety Report 9743169 (Version 1)
Quarter: 2013Q4

REPORT INFORMATION
  Report Type: Spontaneous
  Country: US (occurrence: US)
  Receive Date: 20131210
  Receipt Date: 20131210
  Transmission Date: 20140711
  Serious: No
  Sender: FDA-Public Use
  Company Number: US-GILEAD-2009-0024882

PATIENT
  Sex: Female

DRUGS (15)
  1. LETAIRIS [Suspect]
     Indication: PULMONARY ARTERIAL HYPERTENSION
     Route: 048
     Dates: start: 20080527
  2. ASPIRIN [Concomitant]
  3. POTASSIUM [Concomitant]
  4. XANAX [Concomitant]
  5. PROCARDIA XL [Concomitant]
  6. METOLAZONE [Concomitant]
  7. ZANTAC [Concomitant]
  8. LOPRESSOR [Concomitant]
  9. LIPITOR [Concomitant]
  10. LISINOPRIL [Concomitant]
  11. FUROSEMIDE [Concomitant]
  12. ISOSORBIDE MONONITRATE [Concomitant]
  13. HUMULIN [Concomitant]
  14. PROZAC [Concomitant]
  15. ACTONEL [Concomitant]

REACTIONS (1)
  - Anaemia [Recovering/Resolving]
